FAERS Safety Report 17390323 (Version 1)
Quarter: 2020Q1

REPORT INFORMATION
  Report Type: Report from Study
  Country: BR (occurrence: BR)
  Receive Date: 20200207
  Receipt Date: 20200207
  Transmission Date: 20200409
  Serious: Yes (Other)
  Sender: FDA-Public Use
  Company Number: BR-JNJFOC-20200153293

PATIENT

DRUGS (5)
  1. SPRAVATO [Suspect]
     Active Substance: ESKETAMINE
     Dosage: FOR FOUR WEEKS
  2. BUPROPION. [Concomitant]
     Active Substance: BUPROPION
  3. VORTIOXETINE. [Concomitant]
     Active Substance: VORTIOXETINE
  4. SPRAVATO [Suspect]
     Active Substance: ESKETAMINE
     Dosage: FOR FOUR WEEKS
  5. SPRAVATO [Suspect]
     Active Substance: ESKETAMINE
     Indication: DEPRESSION

REACTIONS (2)
  - Disturbance in social behaviour [Unknown]
  - Suicidal ideation [Unknown]
